FAERS Safety Report 10058508 (Version 2)
Quarter: 2014Q2

REPORT INFORMATION
  Report Type: Spontaneous
  Country: US (occurrence: US)
  Receive Date: 20140404
  Receipt Date: 20140422
  Transmission Date: 20141212
  Serious: Yes (Other)
  Sender: FDA-Public Use
  Company Number: US-BAYER-2014-049714

PATIENT
  Age: 21 Year
  Sex: Female

DRUGS (10)
  1. YAZ [Suspect]
  2. ZEGERID [Concomitant]
  3. ZYRTEC [Concomitant]
  4. MAXAIR [Concomitant]
  5. BACTRIM DS [Concomitant]
  6. PERCOCET [Concomitant]
  7. SLIPPERY ELM [Concomitant]
  8. FLINTSTONES [Concomitant]
  9. ALBUTEROL [Concomitant]
  10. OMEPRAZOLE [Concomitant]

REACTIONS (1)
  - Thrombophlebitis superficial [Recovered/Resolved]
